FAERS Safety Report 4894139-4 (Version None)
Quarter: 2005Q4

REPORT INFORMATION
  Report Type: 
  Country: None (occurrence: None)
  Receive Date: 20051223
  Receipt Date: 20051017
  Transmission Date: 20060501
  Serious: No
  Sender: FDA-Public Use
  Company Number: 2005PV003285

PATIENT
  Sex: Female

DRUGS (1)
  1. SYMLIN [Suspect]
     Dosage: SC
     Route: 058
     Dates: start: 20050101

REACTIONS (2)
  - HEADACHE [None]
  - INSOMNIA [None]
